FAERS Safety Report 7961533-4 (Version None)
Quarter: 2011Q4

REPORT INFORMATION
  Report Type: 
  Country: None (occurrence: None)
  Receive Date: 20111207
  Receipt Date: 20111129
  Transmission Date: 20120403
  Serious: Yes (Hospitalization, Other)
  Sender: FDA-Public Use
  Company Number: US-ASTELLAS-2011US003223

PATIENT
  Sex: Male
  Weight: 108 kg

DRUGS (15)
  1. PROGRAF [Suspect]
     Indication: RENAL TRANSPLANT
     Dosage: 3 MG, BID
     Route: 048
     Dates: start: 19910214
  2. LOPRESSOR [Concomitant]
     Indication: HYPERTENSION
     Dosage: 100 MG, BID
     Route: 048
     Dates: start: 19910214
  3. PROGRAF [Suspect]
     Indication: PANCREAS TRANSPLANT
     Dosage: 3 MG, BID
     Route: 048
     Dates: start: 20020201, end: 20100120
  4. MYCOPHENOLATE MOFETIL [Concomitant]
     Indication: RENAL TRANSPLANT
     Dosage: 500 MG, BID
     Route: 048
  5. TACROLIMUS [Suspect]
     Indication: RENAL TRANSPLANT
     Dosage: 3 MG, BID
     Route: 065
     Dates: start: 20100120
  6. CARDURA [Concomitant]
     Indication: HYPERTENSION
     Dosage: 4 MG, QHS
     Route: 048
  7. PREDNISONE TAB [Concomitant]
     Indication: RENAL AND PANCREAS TRANSPLANT
     Dosage: 5 MG, UID/QD
     Route: 048
     Dates: start: 19910214
  8. TACROLIMUS [Suspect]
     Indication: PANCREAS TRANSPLANT
  9. LOTENSIN [Suspect]
     Indication: PRODUCT USED FOR UNKNOWN INDICATION
     Dosage: 40 MG, UNKNOWN/D
     Route: 065
  10. CARDURA [Concomitant]
     Dosage: 2 MG, UID/QD
     Route: 048
  11. OXYCODONE HCL [Concomitant]
     Indication: PRODUCT USED FOR UNKNOWN INDICATION
     Dosage: UNK
     Route: 065
  12. TRAZODONE HCL [Concomitant]
     Indication: SLEEP DISORDER
     Dosage: 100 MG, UID/QD
     Route: 048
     Dates: start: 20080101
  13. MYCOPHENOLATE MOFETIL (CELLCEPT) [Concomitant]
     Indication: RENAL AND PANCREAS TRANSPLANT
     Dosage: 500 MG, BID
     Route: 048
     Dates: start: 19910214
  14. HYDRALAZINE HCL [Concomitant]
     Indication: CARDIAC DISORDER
     Dosage: 25 MG, BID
     Route: 048
     Dates: start: 20100101
  15. MYCOPHENOLATE MOFETIL [Concomitant]
     Indication: PANCREAS TRANSPLANT

REACTIONS (12)
  - PANCREATITIS [None]
  - BLOOD CREATININE INCREASED [None]
  - HOSPITALISATION [None]
  - PANCREATIC CYST [None]
  - OFF LABEL USE [None]
  - RIB FRACTURE [None]
  - BACK DISORDER [None]
  - FALL [None]
  - PLEURAL EFFUSION [None]
  - HYPOVOLAEMIA [None]
  - RENAL AND PANCREAS TRANSPLANT [None]
  - DIARRHOEA [None]
